FAERS Safety Report 18271753 (Version 1)
Quarter: 2020Q3

REPORT INFORMATION
  Report Type: Spontaneous
  Country: US (occurrence: US)
  Receive Date: 20200915
  Receipt Date: 20200915
  Transmission Date: 20201103
  Serious: No
  Sender: FDA-Public Use
  Company Number: None

PATIENT
  Age: 61 Year
  Sex: Male
  Weight: 144 kg

DRUGS (12)
  1. TRULICITY [Suspect]
     Active Substance: DULAGLUTIDE
     Indication: DIABETES MELLITUS
     Dosage: ?          QUANTITY:.5 ML;OTHER FREQUENCY:ONCE WEEKLY;?
     Route: 058
     Dates: start: 20200808
  2. MULTIVITAMIN [Concomitant]
     Active Substance: VITAMINS
  3. PLAVIX [Concomitant]
     Active Substance: CLOPIDOGREL BISULFATE
  4. VITAMIN D3 [Concomitant]
     Active Substance: CHOLECALCIFEROL
  5. CANBABIS [Concomitant]
  6. LANTUS [Concomitant]
     Active Substance: INSULIN GLARGINE
  7. LOSARTAN. [Concomitant]
     Active Substance: LOSARTAN
  8. DEXCOM G6 SENSOR [Concomitant]
     Active Substance: DEVICE
  9. HUMALOG [Concomitant]
     Active Substance: INSULIN LISPRO
  10. CARVEDILOL. [Concomitant]
     Active Substance: CARVEDILOL
  11. SPIRONALACTONE [Concomitant]
     Active Substance: SPIRONOLACTONE
  12. ZYRTEC [Concomitant]
     Active Substance: CETIRIZINE HYDROCHLORIDE

REACTIONS (4)
  - Diarrhoea [None]
  - Nausea [None]
  - Vomiting [None]
  - Hypophagia [None]

NARRATIVE: CASE EVENT DATE: 20200911
